FAERS Safety Report 13103817 (Version 4)
Quarter: 2017Q1

REPORT INFORMATION
  Report Type: Spontaneous
  Country: CN (occurrence: CN)
  Receive Date: 20170111
  Receipt Date: 20170120
  Transmission Date: 20170428
  Serious: No
  Sender: FDA-Public Use
  Company Number: CN-009507513-1701CHN004132

PATIENT
  Sex: Female

DRUGS (1)
  1. MARVELON [Suspect]
     Active Substance: DESOGESTREL\ETHINYL ESTRADIOL
     Indication: MENSTRUAL CYCLE MANAGEMENT
     Dosage: UNK
     Route: 048

REACTIONS (2)
  - Hyperglycaemia [Unknown]
  - Product use issue [Unknown]
